FAERS Safety Report 21847687 (Version 2)
Quarter: 2023Q1

REPORT INFORMATION
  Report Type: Spontaneous
  Country: US (occurrence: US)
  Receive Date: 20230111
  Receipt Date: 20230315
  Transmission Date: 20230418
  Serious: No
  Sender: FDA-Public Use
  Company Number: US-LEO Pharma-348324

PATIENT
  Sex: Female

DRUGS (1)
  1. ADBRY [Suspect]
     Active Substance: TRALOKINUMAB-LDRM
     Indication: Dermatitis atopic
     Dosage: 300 MG
     Route: 058
     Dates: start: 20221114

REACTIONS (8)
  - Neck pain [Unknown]
  - Eczema [Unknown]
  - Pruritus [Unknown]
  - Arthralgia [Unknown]
  - Anxiety [Unknown]
  - Back pain [Unknown]
  - Fatigue [Unknown]
  - Weight increased [Unknown]
